FAERS Safety Report 5047395-6 (Version None)
Quarter: 2006Q3

REPORT INFORMATION
  Report Type: 
  Country: None (occurrence: None)
  Receive Date: 20060703
  Receipt Date: 20060609
  Transmission Date: 20061208
  Serious: Yes (Death, Hospitalization)
  Sender: FDA-Public Use
  Company Number: 2006001214

PATIENT
  Age: 66 Year
  Sex: Male

DRUGS (1)
  1. TARCEVA [Suspect]
     Indication: NON-SMALL CELL LUNG CANCER
     Dosage: 150 MG (QD), ORAL
     Route: 048

REACTIONS (4)
  - DEHYDRATION [None]
  - DIARRHOEA [None]
  - RENAL FAILURE [None]
  - SEPSIS [None]
